FAERS Safety Report 6655953-8 (Version None)
Quarter: 2010Q1

REPORT INFORMATION
  Report Type: 
  Country: None (occurrence: None)
  Receive Date: 20100329
  Receipt Date: 20100322
  Transmission Date: 20100710
  Serious: Yes (Other)
  Sender: FDA-Public Use
  Company Number: PHEH2010US03266

PATIENT
  Sex: Female

DRUGS (2)
  1. VOLTAREN-XR [Suspect]
     Dosage: UNK
     Dates: start: 20081201
  2. METHOTREXATE [Concomitant]
     Dosage: UNK, UNK
     Route: 065

REACTIONS (3)
  - CELLULITIS [None]
  - JOINT SWELLING [None]
  - RHEUMATOID ARTHRITIS [None]
